FAERS Safety Report 20049413 (Version 1)
Quarter: 2021Q4

REPORT INFORMATION
  Report Type: Spontaneous
  Country: US (occurrence: US)
  Receive Date: 20211109
  Receipt Date: 20211109
  Transmission Date: 20220303
  Serious: Yes (Life-Threatening, Hospitalization)
  Sender: FDA-Public Use
  Company Number: US-MYLANLABS-2021M1080655

PATIENT
  Age: 31 Year
  Sex: Female

DRUGS (9)
  1. ADENOSINE [Suspect]
     Active Substance: ADENOSINE
     Indication: Supraventricular tachycardia
     Dosage: UNK
     Route: 065
  2. PROPRANOLOL [Suspect]
     Active Substance: PROPRANOLOL HYDROCHLORIDE
     Indication: Supraventricular tachycardia
     Dosage: UNK
     Route: 065
  3. METHIMAZOLE [Concomitant]
     Active Substance: METHIMAZOLE
     Indication: Thyrotoxic crisis
     Dosage: UNK
     Route: 065
  4. DECADRON                           /00016001/ [Concomitant]
     Indication: Thyrotoxic crisis
     Dosage: UNK
     Route: 065
  5. LUGOL                              /01189801/ [Concomitant]
     Indication: Thyrotoxic crisis
     Dosage: UNK
     Route: 065
  6. LUGOL                              /01189801/ [Concomitant]
     Dosage: 10 DROP (1/12 MILLILITRE), Q8H
     Route: 065
  7. HYDROCORTISONE [Concomitant]
     Active Substance: HYDROCORTISONE
     Indication: Thyrotoxic crisis
     Dosage: 100 MILLIGRAM, Q8H
     Route: 042
  8. PROPYLTHIOURACIL [Concomitant]
     Active Substance: PROPYLTHIOURACIL
     Indication: Thyrotoxic crisis
     Dosage: 200 MILLIGRAM, Q4H
     Route: 048
  9. LEVOTHYROXINE [Concomitant]
     Active Substance: LEVOTHYROXINE
     Indication: Post procedural hypothyroidism
     Dosage: UNK
     Route: 065

REACTIONS (4)
  - Hypotension [Recovering/Resolving]
  - Cardiac arrest [Recovered/Resolved]
  - Cardio-respiratory arrest [Recovering/Resolving]
  - Drug ineffective [Unknown]
